FAERS Safety Report 6638921-1 (Version None)
Quarter: 2010Q1

REPORT INFORMATION
  Report Type: 
  Country: None (occurrence: None)
  Receive Date: 20100317
  Receipt Date: 20100303
  Transmission Date: 20100710
  Serious: Yes (Other)
  Sender: FDA-Public Use
  Company Number: PHEH2007US15447

PATIENT
  Sex: Male
  Weight: 73.016 kg

DRUGS (31)
  1. AREDIA [Suspect]
     Dosage: 60 MG, UNK
  2. ZOMETA [Suspect]
     Indication: BONE EROSION
     Dosage: 4 MG, QMO
     Route: 042
  3. ZOMETA [Suspect]
     Indication: PATHOLOGICAL FRACTURE
  4. CELEBREX [Concomitant]
  5. OXYCODONE HCL [Concomitant]
  6. NEXIUM [Concomitant]
  7. ACETAMINOPHEN AND HYDROCODONE BITARTRATE [Concomitant]
  8. MULTIVITAMIN ^LAPPE^ [Concomitant]
  9. COLOSTRUM [Concomitant]
  10. SAW PALMETTO [Concomitant]
  11. SOY ISOFLAVONES [Concomitant]
  12. KYTRIL [Concomitant]
  13. BENADRYL ^ACHE^ [Concomitant]
  14. AMOXICILLIN [Concomitant]
     Indication: OSTEONECROSIS
     Dosage: 500 MG, BID
  15. VELCADE [Concomitant]
     Dosage: UNK
     Dates: start: 20050101
  16. REVLIMID [Concomitant]
  17. MELPHALAN HYDROCHLORIDE [Concomitant]
  18. DECADRON [Concomitant]
  19. CYCLOBENZAPRINE [Concomitant]
     Dosage: 10 MG, UNK
  20. CHLORHEXIDINE GLUCONATE [Concomitant]
  21. FLEXERIL [Concomitant]
  22. ZITHROMAX [Concomitant]
     Dosage: UNK
  23. CLINDAMYCIN [Concomitant]
     Dosage: UNK
  24. VANCOMYCIN [Concomitant]
     Dosage: UNK
  25. MOXIFLOXACIN HYDROCHLORIDE [Concomitant]
     Dosage: 400 MG DAILY
     Dates: start: 20030715
  26. PEGFILGRASTIM [Concomitant]
     Dosage: UNK
     Dates: start: 20030811
  27. CLOTRIMAZOLE ^POLFA^ [Concomitant]
     Dosage: UNK
  28. ZOFRAN [Concomitant]
     Dosage: UNK
     Dates: start: 20030815
  29. CIPRO [Concomitant]
     Dosage: UNK
     Dates: start: 20030815
  30. CEFEPIME [Concomitant]
     Dosage: UNK
  31. ZOSYN [Concomitant]
     Dosage: UNK

REACTIONS (37)
  - ABSCESS [None]
  - ALVEOLOPLASTY [None]
  - ANXIETY [None]
  - APLASTIC ANAEMIA [None]
  - ARTHRALGIA [None]
  - BONE NEOPLASM [None]
  - CHILLS [None]
  - COMPRESSION FRACTURE [None]
  - CONSTIPATION [None]
  - DENTAL CARIES [None]
  - ENDODONTIC PROCEDURE [None]
  - ENTEROBACTER INFECTION [None]
  - FRACTURE [None]
  - INJURY [None]
  - NAUSEA [None]
  - NEUROPATHY PERIPHERAL [None]
  - ORAL HERPES [None]
  - OSTEONECROSIS [None]
  - OSTEOPENIA [None]
  - OSTEOPOROSIS [None]
  - PAIN [None]
  - POOR DENTAL CONDITION [None]
  - POOR PERSONAL HYGIENE [None]
  - RASH [None]
  - ROAD TRAFFIC ACCIDENT [None]
  - SENSATION OF HEAVINESS [None]
  - SINUS HEADACHE [None]
  - SKIN CANDIDA [None]
  - SPINAL FRACTURE [None]
  - SPINAL OSTEOARTHRITIS [None]
  - STEM CELL TRANSPLANT [None]
  - SUBARACHNOID HAEMORRHAGE [None]
  - SUBDURAL HAEMORRHAGE [None]
  - TOOTH EXTRACTION [None]
  - TOOTH FRACTURE [None]
  - VOMITING [None]
  - WEIGHT DECREASED [None]
